FAERS Safety Report 13711942 (Version 1)
Quarter: 2017Q3

REPORT INFORMATION
  Report Type: Spontaneous
  Country: US (occurrence: US)
  Receive Date: 20170703
  Receipt Date: 20170703
  Transmission Date: 20171127
  Serious: Yes (Hospitalization)
  Sender: FDA-Public Use
  Company Number: None

PATIENT
  Age: 53 Year
  Sex: Female
  Weight: 101 kg

DRUGS (15)
  1. BYDUREON [Suspect]
     Active Substance: EXENATIDE
     Indication: DIABETES MELLITUS
     Dosage: ?          OTHER DOSE:MG;OTHER FREQUENCY:ONCE WEEKLY;?
     Route: 058
     Dates: start: 20170505, end: 20170702
  2. LASIX [Concomitant]
     Active Substance: FUROSEMIDE
  3. CARVEDILOL (COREG) [Concomitant]
  4. LIDOCAINE (XYLOCAINE) [Concomitant]
  5. ASPIRIN. [Concomitant]
     Active Substance: ASPIRIN
  6. LIPITOR [Concomitant]
     Active Substance: ATORVASTATIN CALCIUM
  7. ALBUTEROL. [Concomitant]
     Active Substance: ALBUTEROL
  8. PROTONIX [Concomitant]
     Active Substance: PANTOPRAZOLE SODIUM
  9. METOLAZONE (ZAROXOLYN) [Concomitant]
  10. NORTRIPTYLINE (PAMELOR) [Concomitant]
  11. LEVEMIR [Concomitant]
     Active Substance: INSULIN DETEMIR
  12. PEN NEEDLE [Concomitant]
  13. ESCITALOPRAM OXALATE (LEXAPRO) [Concomitant]
  14. INSULIN ASPART (NOVOLOG FLEXPEN) [Concomitant]
  15. LISINOPRIL (PRINIVIL,ZESTRIL) [Concomitant]

REACTIONS (1)
  - Pancreatitis [None]

NARRATIVE: CASE EVENT DATE: 20170702
